FAERS Safety Report 5175270-5 (Version None)
Quarter: 2006Q4

REPORT INFORMATION
  Report Type: 
  Country: None (occurrence: None)
  Receive Date: 20061211
  Receipt Date: 20061211
  Transmission Date: 20070319
  Serious: Yes (Other)
  Sender: FDA-Public Use
  Company Number: None

PATIENT
  Age: 75 Year
  Sex: Male

DRUGS (1)
  1. ADVODART 0.5 MG [Suspect]
     Indication: PROSTATIC DISORDER
     Dosage: 1 BY MOUTH DAILY
     Route: 048
     Dates: start: 20060601

REACTIONS (2)
  - BREAST TENDERNESS [None]
  - NIPPLE PAIN [None]
